FAERS Safety Report 5217339-2 (Version None)
Quarter: 2007Q1

REPORT INFORMATION
  Report Type: 
  Country: None (occurrence: None)
  Receive Date: 20070124
  Receipt Date: 20060112
  Transmission Date: 20070707
  Serious: No
  Sender: FDA-Public Use
  Company Number: US-GLAXOSMITHKLINE-A0589024A

PATIENT
  Age: 54 Year
  Sex: Male

DRUGS (3)
  1. PAXIL CR [Suspect]
     Indication: PANIC DISORDER
     Dosage: 50MG PER DAY
     Route: 048
     Dates: start: 20050101
  2. MULTI-VITAMIN [Concomitant]
  3. ASCORBIC ACID [Concomitant]

REACTIONS (2)
  - ANXIETY [None]
  - SOMNOLENCE [None]
